FAERS Safety Report 18476302 (Version 7)
Quarter: 2021Q2

REPORT INFORMATION
  Report Type: Report from Study
  Country: US (occurrence: US)
  Receive Date: 20201106
  Receipt Date: 20210629
  Transmission Date: 20210717
  Serious: Yes (Hospitalization)
  Sender: FDA-Public Use
  Company Number: US-SEATTLE GENETICS-2020SGN04545

PATIENT
  Sex: Female

DRUGS (2)
  1. TUCATINIB [Suspect]
     Active Substance: TUCATINIB
     Dosage: 300 MG, QD
  2. TUCATINIB [Suspect]
     Active Substance: TUCATINIB
     Indication: PRODUCT USED FOR UNKNOWN INDICATION
     Dosage: 50 MG, UNK

REACTIONS (33)
  - Eating disorder [Unknown]
  - Abdominal pain upper [Unknown]
  - Pruritus [Unknown]
  - Vomiting [Unknown]
  - Muscle spasms [Unknown]
  - Fatigue [Unknown]
  - Nausea [Unknown]
  - Mobility decreased [Unknown]
  - Alopecia [Unknown]
  - Skin exfoliation [Unknown]
  - Gait disturbance [Unknown]
  - Malaise [Unknown]
  - Pain [Unknown]
  - Dizziness [Unknown]
  - Loss of personal independence in daily activities [Unknown]
  - Skin discolouration [Unknown]
  - Musculoskeletal stiffness [Unknown]
  - Peripheral swelling [Unknown]
  - Hospitalisation [Unknown]
  - Adverse drug reaction [Unknown]
  - Hallucination [Unknown]
  - Bone pain [Unknown]
  - Skin hyperpigmentation [Unknown]
  - Headache [Unknown]
  - Pain in extremity [Unknown]
  - Asthenia [Unknown]
  - Walking aid user [Unknown]
  - Dysstasia [Unknown]
  - Hypoaesthesia [Unknown]
  - Wheelchair user [Unknown]
  - Somnolence [Unknown]
  - Trichorrhexis [Unknown]
  - Autoscopy [Unknown]
